FAERS Safety Report 19799266 (Version 2)
Quarter: 2021Q4

REPORT INFORMATION
  Report Type: Spontaneous
  Country: AU (occurrence: AU)
  Receive Date: 20210907
  Receipt Date: 20211011
  Transmission Date: 20220303
  Serious: Yes (Other)
  Sender: FDA-Public Use
  Company Number: AU-MYLANLABS-2021M1055770

PATIENT
  Age: 10 Year
  Sex: Male

DRUGS (3)
  1. FLUOXETINE HYDROCHLORIDE [Suspect]
     Active Substance: FLUOXETINE HYDROCHLORIDE
     Indication: Anxiety
     Dosage: 5 MILLIGRAM
  2. FLUOXETINE HYDROCHLORIDE [Suspect]
     Active Substance: FLUOXETINE HYDROCHLORIDE
     Indication: Depression
     Dosage: 10 MILLIGRAM
     Dates: start: 20210613, end: 20210801
  3. RITALIN [Concomitant]
     Active Substance: METHYLPHENIDATE HYDROCHLORIDE
     Indication: Attention deficit hyperactivity disorder
     Dosage: 15 MILLIGRAM

REACTIONS (8)
  - Suicidal ideation [Unknown]
  - Intentional self-injury [Unknown]
  - Mood swings [Unknown]
  - Condition aggravated [Unknown]
  - Thinking abnormal [Unknown]
  - Headache [Unknown]
  - Nausea [Unknown]
  - Aggression [Unknown]

NARRATIVE: CASE EVENT DATE: 20210613
